FAERS Safety Report 4994702-6 (Version None)
Quarter: 2006Q1

REPORT INFORMATION
  Report Type: 
  Country: None (occurrence: None)
  Receive Date: 20060313
  Receipt Date: 20050407
  Transmission Date: 20060701
  Serious: Yes (Other)
  Sender: FDA-Public Use
  Company Number: PHEH2005US03789

PATIENT
  Age: 32 Year
  Sex: Female

DRUGS (3)
  1. TRILEPTAL [Suspect]
     Indication: CONVULSION
     Dosage: 1500 MG,QD,ORAL;900 MG,BID,ORAL
     Route: 048
     Dates: start: 20040101, end: 20050201
  2. TRILEPTAL [Suspect]
     Indication: CONVULSION
     Dosage: 1500 MG,QD,ORAL;900 MG,BID,ORAL
     Route: 048
     Dates: start: 20050201
  3. LAMOTRIGIN (LAMOTRIGINE) [Concomitant]

REACTIONS (3)
  - CONVULSION [None]
  - DIZZINESS [None]
  - FATIGUE [None]
